FAERS Safety Report 6879880-6 (Version None)
Quarter: 2010Q3

REPORT INFORMATION
  Report Type: 
  Country: None (occurrence: None)
  Receive Date: 20100727
  Receipt Date: 20100405
  Transmission Date: 20110219
  Serious: No
  Sender: FDA-Public Use
  Company Number: US-ABBOTT-10P-163-0637388-00

PATIENT
  Sex: Female
  Weight: 72.186 kg

DRUGS (4)
  1. SYNTHROID [Suspect]
     Indication: HYPOTHYROIDISM
     Dates: start: 20050101, end: 20091201
  2. SYNTHROID [Suspect]
     Dates: start: 20091201, end: 20100301
  3. SYNTHROID [Suspect]
     Dates: start: 20100301
  4. JANUMET [Concomitant]
     Indication: DIABETES MELLITUS
     Dosage: 50/500 MG
     Dates: start: 20100101

REACTIONS (1)
  - BLOOD GLUCOSE INCREASED [None]
